FAERS Safety Report 7637914-5 (Version None)
Quarter: 2011Q3

REPORT INFORMATION
  Report Type: 
  Country: None (occurrence: None)
  Receive Date: 20110720
  Receipt Date: 20110713
  Transmission Date: 20111222
  Serious: Yes (Death)
  Sender: FDA-Public Use
  Company Number: 201110879

PATIENT
  Sex: Female

DRUGS (5)
  1. LIORESAL [Suspect]
     Indication: MUSCLE SPASTICITY
     Dosage: 112.49 MCG, DAILY, INTRATHECAL
     Route: 037
  2. DROPERIDOL [Concomitant]
  3. BUPIVACAINE HCL [Concomitant]
  4. CLONIDINE [Concomitant]
  5. DILAUDID [Concomitant]

REACTIONS (3)
  - NEOPLASM MALIGNANT [None]
  - LYMPHOMA [None]
  - CONDITION AGGRAVATED [None]
